FAERS Safety Report 8210665-4 (Version None)
Quarter: 2012Q1

REPORT INFORMATION
  Report Type: 
  Country: None (occurrence: None)
  Receive Date: 20120314
  Receipt Date: 20120305
  Transmission Date: 20120608
  Serious: Yes (Other)
  Sender: FDA-Public Use
  Company Number: US-ASTRAZENECA-2012SE15416

PATIENT
  Sex: Female

DRUGS (3)
  1. ATACAND [Suspect]
     Route: 048
  2. LOSARTAN POTASSIUM [Suspect]
     Route: 065
  3. TOPROL-XL [Suspect]
     Route: 048

REACTIONS (9)
  - DRUG NAME CONFUSION [None]
  - SOMNOLENCE [None]
  - RETCHING [None]
  - RASH [None]
  - SYNCOPE [None]
  - DYSPHAGIA [None]
  - PRURITUS [None]
  - DIZZINESS [None]
  - IMPAIRED DRIVING ABILITY [None]
